FAERS Safety Report 14192487 (Version 1)
Quarter: 2017Q4

REPORT INFORMATION
  Report Type: Spontaneous
  Country: US (occurrence: US)
  Receive Date: 20171116
  Receipt Date: 20171116
  Transmission Date: 20180321
  Serious: No
  Sender: FDA-Public Use
  Company Number: US-BRISTOL-MYERS SQUIBB COMPANY-BMS-2017-100459

PATIENT
  Age: 58 Year
  Sex: Male

DRUGS (2)
  1. SPRYCEL [Suspect]
     Active Substance: DASATINIB
     Indication: CHRONIC MYELOID LEUKAEMIA
     Dosage: 20 MG, UNK
     Route: 048
     Dates: start: 201402, end: 201609
  2. SPRYCEL [Suspect]
     Active Substance: DASATINIB
     Indication: PRODUCT USED FOR UNKNOWN INDICATION
     Dosage: UNK
     Route: 048
     Dates: start: 201611

REACTIONS (5)
  - Dyspepsia [Unknown]
  - Lymphadenopathy [Unknown]
  - Musculoskeletal stiffness [Unknown]
  - Underdose [Unknown]
  - Oesophagitis [Unknown]

NARRATIVE: CASE EVENT DATE: 201512
